FAERS Safety Report 9159803 (Version 1)
Quarter: 2013Q1

REPORT INFORMATION
  Report Type: Spontaneous
  Country: US (occurrence: None)
  Receive Date: 20130220
  Receipt Date: 20130220
  Transmission Date: 20140127
  Serious: Yes (Hospitalization)
  Sender: FDA-Public Use
  Company Number: SYM-2013-00486

PATIENT
  Age: 29 Year
  Sex: Male

DRUGS (1)
  1. XENAZINE(TETRABENAZINE) (TABLETS) (TETRABENAZINE) [Suspect]
     Indication: BACTERAEMIA
     Route: 048
     Dates: start: 201301

REACTIONS (2)
  - Blood calcium increased [None]
  - White blood cell count increased [None]
